FAERS Safety Report 4606570-2 (Version None)
Quarter: 2005Q2

REPORT INFORMATION
  Report Type: 
  Country: None (occurrence: None)
  Receive Date: 20050223
  Receipt Date: 20040723
  Transmission Date: 20051028
  Serious: Yes (Life-Threatening, Hospitalization, Disabling)
  Sender: FDA-Public Use
  Company Number: WAES 0407USA02210

PATIENT
  Age: 86 Year
  Sex: Male
  Weight: 117.9352 kg

DRUGS (11)
  1. ZOCOR [Suspect]
     Indication: HYPERLIPIDAEMIA
     Dosage: 40 MG/DAILY/PO;  PO
     Route: 048
     Dates: start: 20030601, end: 20040306
  2. ZOCOR [Suspect]
     Indication: HYPERLIPIDAEMIA
     Dosage: 40 MG/DAILY/PO;  PO
     Route: 048
     Dates: start: 20040316
  3. CARDURA [Concomitant]
  4. METAMUCIL-2 [Concomitant]
  5. OCUVITE [Concomitant]
  6. OSTEO-BI-FLEX [Concomitant]
  7. PRINIVIL [Concomitant]
  8. ASPIRIN [Concomitant]
  9. ATENOLOL [Concomitant]
  10. INSULIN [Concomitant]
  11. VITAMINS (UNSPECIFIED) [Concomitant]

REACTIONS (7)
  - BLOOD CREATININE INCREASED [None]
  - BLOOD POTASSIUM INCREASED [None]
  - BLOOD UREA INCREASED [None]
  - DYSPNOEA [None]
  - PANCREATITIS [None]
  - PANCREATITIS ACUTE [None]
  - PROSTATITIS [None]
